FAERS Safety Report 9585753 (Version 2)
Quarter: 2013Q4

REPORT INFORMATION
  Report Type: Spontaneous
  Country: CH (occurrence: None)
  Receive Date: 20131001
  Receipt Date: 20131001
  Transmission Date: 20140711
  Serious: Yes (Hospitalization)
  Sender: FDA-Public Use
  Company Number: 20130504

PATIENT
  Age: 49 Year
  Sex: Female
  Weight: 85 kg

DRUGS (2)
  1. FERINJECT [Suspect]
     Indication: IRON DEFICIENCY ANAEMIA
     Dosage: 1 VIAL INJECTIN NOS
     Dates: start: 20030815, end: 20130815
  2. METFORMIN [Suspect]
     Dates: start: 20120618

REACTIONS (6)
  - Myalgia [None]
  - Neck pain [None]
  - Back pain [None]
  - Chest pain [None]
  - Pyrexia [None]
  - Musculoskeletal stiffness [None]
